FAERS Safety Report 4993455-5 (Version None)
Quarter: 2006Q2

REPORT INFORMATION
  Report Type: 
  Country: None (occurrence: None)
  Receive Date: 20060504
  Receipt Date: 20060504
  Transmission Date: 20061013
  Serious: Yes (Other)
  Sender: FDA-Public Use
  Company Number: None

PATIENT
  Age: 45 Year
  Sex: Female
  Weight: 52.1637 kg

DRUGS (1)
  1. TEQUIN [Suspect]
     Indication: SINUSITIS
     Dosage: 1 TABLET EVERY DAY FOR 21 PO [21 PILLS IN 30 DAYS]
     Route: 048
     Dates: start: 20060221, end: 20060321

REACTIONS (3)
  - BLOOD GLUCOSE DECREASED [None]
  - IMPAIRED DRIVING ABILITY [None]
  - SOMNOLENCE [None]
